FAERS Safety Report 23104978 (Version 1)
Quarter: 2023Q4

REPORT INFORMATION
  Report Type: Spontaneous
  Country: DE (occurrence: DE)
  Receive Date: 20231025
  Receipt Date: 20231025
  Transmission Date: 20240110
  Serious: Yes (Death, Other)
  Sender: FDA-Public Use
  Company Number: DE-AMGEN-DEUSP2023186022

PATIENT

DRUGS (1)
  1. BEVACIZUMAB [Suspect]
     Active Substance: BEVACIZUMAB
     Indication: Ovarian cancer
     Dosage: UNK
     Route: 065

REACTIONS (7)
  - Death [Fatal]
  - Ovarian cancer recurrent [Unknown]
  - Complication associated with device [Unknown]
  - Hypokalaemia [Unknown]
  - Skin irritation [Unknown]
  - Stoma site haemorrhage [Unknown]
  - Stoma site discharge [Unknown]
